FAERS Safety Report 9194596 (Version 1)
Quarter: 2013Q1

REPORT INFORMATION
  Report Type: Spontaneous
  Country: US (occurrence: US)
  Receive Date: 20130328
  Receipt Date: 20130328
  Transmission Date: 20140127
  Serious: No
  Sender: FDA-Public Use
  Company Number: US-ALLERGAN-1209866US

PATIENT
  Age: 46 Year
  Sex: Female

DRUGS (1)
  1. LATISSE 0.03% [Suspect]
     Indication: GROWTH OF EYELASHES
     Dosage: 2 GTT, UNK
     Route: 061
     Dates: start: 20120613, end: 201207

REACTIONS (3)
  - Visual impairment [Recovered/Resolved]
  - Eyelids pruritus [Recovered/Resolved]
  - Eye pruritus [Recovered/Resolved]
